FAERS Safety Report 8244965-9 (Version None)
Quarter: 2012Q1

REPORT INFORMATION
  Report Type: 
  Country: None (occurrence: None)
  Receive Date: 20120329
  Receipt Date: 20111021
  Transmission Date: 20120608
  Serious: No
  Sender: FDA-Public Use
  Company Number: US-MYLANLABS-2011S1022139

PATIENT
  Sex: Female

DRUGS (18)
  1. FENTANYL-100 [Suspect]
     Indication: PAIN
     Dosage: Q72H
     Route: 062
  2. IMDUR [Concomitant]
  3. NITRGLYCERIN TRANSDERMAL SYSTEM [Suspect]
     Indication: CARDIAC DISORDER
     Dosage: CHANGED Q24H
     Route: 062
     Dates: start: 20000101
  4. RANIXAL [Concomitant]
  5. WELLBUTRIN [Concomitant]
  6. NITROGLYCERIN [Concomitant]
     Route: 060
  7. LISINOPRIL [Concomitant]
  8. CARDIZEM [Concomitant]
  9. ZETIA [Concomitant]
  10. SYNTHROID [Concomitant]
  11. DEXILANT [Concomitant]
  12. REGLAN [Concomitant]
  13. COUMADIN [Concomitant]
  14. PHENERGAN HCL [Concomitant]
  15. ZOFRAN [Concomitant]
  16. PLAVIX [Concomitant]
  17. CRESTOR [Concomitant]
  18. BONIVA [Concomitant]

REACTIONS (1)
  - MEDICATION ERROR [None]
